FAERS Safety Report 9822152 (Version 1)
Quarter: 2014Q1

REPORT INFORMATION
  Report Type: Spontaneous
  Country: FR (occurrence: FR)
  Receive Date: 20140116
  Receipt Date: 20140116
  Transmission Date: 20141002
  Serious: Yes (Hospitalization)
  Sender: FDA-Public Use
  Company Number: FR-ASTRAZENECA-2014SE01144

PATIENT
  Age: 52 Year
  Sex: Male

DRUGS (3)
  1. INEXIUM (AZ DRUG) [Suspect]
     Route: 048
     Dates: start: 20120123, end: 20120324
  2. COUMADINE [Suspect]
     Route: 048
     Dates: start: 20120202, end: 20120224
  3. KARDEGIC [Suspect]
     Route: 048
     Dates: start: 20120113, end: 20120324

REACTIONS (1)
  - Drug reaction with eosinophilia and systemic symptoms [Recovered/Resolved]
